FAERS Safety Report 6536676-2 (Version None)
Quarter: 2010Q1

REPORT INFORMATION
  Report Type: 
  Country: None (occurrence: None)
  Receive Date: 20100106
  Receipt Date: 20091222
  Transmission Date: 20100710
  Serious: Yes (Hospitalization, Other)
  Sender: FDA-Public Use
  Company Number: AUR-APL-2010-00007

PATIENT
  Age: 72 Year
  Sex: Male

DRUGS (9)
  1. SIMVASTATIN [Suspect]
     Dosage: ORAL
     Route: 048
     Dates: end: 20091101
  2. CORDARONE [Suspect]
     Indication: TACHYARRHYTHMIA
     Dosage: 200MG, ORAL
     Route: 048
     Dates: start: 19940101, end: 20091102
  3. MABTHERA        (RITUXIMAB) SOLUTION FOR INFUSION [Suspect]
     Indication: NON-HODGKIN'S LYMPHOMA
     Dosage: IV
     Route: 042
     Dates: start: 20080801, end: 20090801
  4. CYCLOPHOSPHAMIDE [Suspect]
     Indication: NON-HODGKIN'S LYMPHOMA
     Dosage: IV
     Route: 042
     Dates: start: 20080801, end: 20090301
  5. PLAVIX [Concomitant]
  6. LASIX [Concomitant]
  7. ATACAND [Concomitant]
  8. LOXEN (NICARDIPINE) [Concomitant]
  9. ALPRES (PRAZOSIN) [Concomitant]

REACTIONS (3)
  - HYPOXIA [None]
  - LARYNGEAL OEDEMA [None]
  - RESPIRATORY DISTRESS [None]
